FAERS Safety Report 7204711-4 (Version None)
Quarter: 2010Q4

REPORT INFORMATION
  Report Type: 
  Country: None (occurrence: None)
  Receive Date: 20101230
  Receipt Date: 20101221
  Transmission Date: 20110411
  Serious: Yes (Other)
  Sender: FDA-Public Use
  Company Number: US-ELI_LILLY_AND_COMPANY-US201012006206

PATIENT
  Age: 47 Year
  Sex: Female

DRUGS (12)
  1. CYMBALTA [Suspect]
     Indication: FIBROMYALGIA
     Dosage: 60 MG, DAILY (1/D)
     Route: 048
  2. CYMBALTA [Suspect]
     Dates: end: 20101114
  3. WELCHOL [Concomitant]
     Indication: BLOOD CHOLESTEROL INCREASED
     Dosage: 1875 MG, 2/D
     Route: 048
     Dates: start: 20101201, end: 20101202
  4. WELLBUTRIN XL [Concomitant]
     Indication: DEPRESSION
     Dosage: 150 MG, DAILY (1/D)
     Route: 048
  5. MILNACIPRAN [Concomitant]
     Indication: FIBROMYALGIA
     Dosage: 12.5 MG, DAILY (1/D)
     Route: 048
     Dates: start: 20101104, end: 20101204
  6. MILNACIPRAN [Concomitant]
     Dosage: 100 MG, EACH MORNING
     Route: 048
     Dates: start: 20101122, end: 20101204
  7. MILNACIPRAN [Concomitant]
     Dosage: 50 MG, EACH EVENING
     Route: 048
     Dates: start: 20101122
  8. ATENOLOL [Concomitant]
     Indication: HYPERTENSION
     Dosage: 50 MG, DAILY (1/D)
  9. TRIAMTERENE [Concomitant]
     Indication: HYPERTENSION
  10. HYDROCHLOROTHIAZIDE [Concomitant]
     Indication: HYPERTENSION
  11. ZETIA [Concomitant]
     Indication: BLOOD CHOLESTEROL INCREASED
     Dosage: 10 MG, DAILY (1/D)
     Route: 048
  12. CELEBREX [Concomitant]
     Indication: OSTEOGENESIS IMPERFECTA
     Dosage: 200 MG, DAILY (1/D)
     Route: 048

REACTIONS (13)
  - ABNORMAL DREAMS [None]
  - ANXIETY [None]
  - BLOOD PRESSURE INCREASED [None]
  - EYE SWELLING [None]
  - HEART RATE INCREASED [None]
  - HYPERSENSITIVITY [None]
  - LIP SWELLING [None]
  - MUSCLE SPASMS [None]
  - OROPHARYNGEAL PAIN [None]
  - SEROTONIN SYNDROME [None]
  - THROAT TIGHTNESS [None]
  - URTICARIA [None]
  - VISION BLURRED [None]
